FAERS Safety Report 19448745 (Version 3)
Quarter: 2021Q3

REPORT INFORMATION
  Report Type: Report from Study
  Country: AU (occurrence: AU)
  Receive Date: 20210622
  Receipt Date: 20210905
  Transmission Date: 20211014
  Serious: No
  Sender: FDA-Public Use
  Company Number: AU-UCBSA-2021026001

PATIENT
  Age: 74 Year
  Sex: Female

DRUGS (1)
  1. ROTIGOTINE PD [Suspect]
     Active Substance: ROTIGOTINE
     Indication: PARKINSON^S DISEASE
     Dosage: 6 MILLIGRAM, ONCE DAILY (QD)
     Route: 062
     Dates: start: 2017

REACTIONS (5)
  - Application site irritation [Recovered/Resolved]
  - Drug ineffective [Unknown]
  - Application site pruritus [Recovered/Resolved]
  - Aptyalism [Not Recovered/Not Resolved]
  - Device adhesion issue [Unknown]

NARRATIVE: CASE EVENT DATE: 202106
